FAERS Safety Report 9312110 (Version 2)
Quarter: 2013Q2

REPORT INFORMATION
  Report Type: Spontaneous
  Country: JP (occurrence: JP)
  Receive Date: 20130528
  Receipt Date: 20130604
  Transmission Date: 20140414
  Serious: Yes (Other)
  Sender: FDA-Public Use
  Company Number: JP-OTSUKA-JP-2013-11744

PATIENT
  Age: 81 Year
  Sex: Male

DRUGS (11)
  1. SAMSCA [Suspect]
     Indication: CARDIAC FAILURE
     Dosage: 7.5 MG MILLIGRAM(S), QD
     Route: 048
     Dates: start: 20130515
  2. PLETAAL [Concomitant]
     Dosage: UNK
     Route: 048
  3. MUCOSTA [Concomitant]
     Dosage: UNK
     Route: 048
  4. THYRADIN [Concomitant]
     Route: 048
  5. MUCOSOLVAN [Concomitant]
     Route: 048
  6. OMEPRAZON [Concomitant]
     Route: 048
  7. HERBESSER [Concomitant]
     Route: 065
  8. NARCARICIN [Concomitant]
     Route: 048
  9. ARTIST [Concomitant]
     Route: 048
  10. LASIX [Concomitant]
  11. ALDACTONE [Concomitant]
     Route: 048

REACTIONS (3)
  - Dyspnoea [Unknown]
  - Vomiting [Unknown]
  - Malaise [Unknown]
